FAERS Safety Report 9154430 (Version 2)
Quarter: 2013Q1

REPORT INFORMATION
  Report Type: Spontaneous
  Country: US (occurrence: None)
  Receive Date: 20130205
  Receipt Date: 20130212
  Transmission Date: 20140127
  Serious: Yes (Other)
  Sender: FDA-Public Use
  Company Number: USA/USA/13/0027757

PATIENT
  Age: 74 Year
  Sex: Female
  Weight: 52.16 kg

DRUGS (5)
  1. ATORVASTATIN [Suspect]
     Indication: BLOOD CHOLESTEROL INCREASED
     Dosage: 80 MG, 1 IN 1 D, ORAL
     Route: 048
     Dates: start: 20121201, end: 20130113
  2. AMLODIPINE BESYLATE + BENAZEPRIL HYDROCHLORIDE CAPSULES 5 MG/40 MG + 10 MG/40 MG (AMLODIPINE BESYLATE W/BENAZEPRIL HYDROCHLORIDE) [Concomitant]
  3. WARFARIN (WARFARIN) [Concomitant]
  4. LEVOTHYROXINE (LEVOTHYROXINE) [Concomitant]
  5. AMIODARONE (AMIODARONE) [Concomitant]

REACTIONS (4)
  - Abdominal discomfort [None]
  - Palpitations [None]
  - Night sweats [None]
  - Insomnia [None]
